FAERS Safety Report 19840952 (Version 1)
Quarter: 2021Q3

REPORT INFORMATION
  Report Type: Spontaneous
  Country: DE (occurrence: DE)
  Receive Date: 20210915
  Receipt Date: 20210915
  Transmission Date: 20211014
  Serious: Yes (Hospitalization)
  Sender: FDA-Public Use
  Company Number: NVSC2021DE207632

PATIENT
  Age: 44 Year
  Sex: Male

DRUGS (2)
  1. ASACOL [Suspect]
     Active Substance: MESALAMINE
     Indication: COLITIS
     Dosage: 4800 MG,QD
     Route: 048
     Dates: start: 20210527
  2. DEKRISTOL [Concomitant]
     Active Substance: CHOLECALCIFEROL
     Indication: PRODUCT USED FOR UNKNOWN INDICATION
     Dosage: 20000 IU, QW
     Route: 065

REACTIONS (1)
  - Infection [Unknown]
